FAERS Safety Report 8533187-X (Version None)
Quarter: 2012Q3

REPORT INFORMATION
  Report Type: 
  Country: None (occurrence: None)
  Receive Date: 20120724
  Receipt Date: 20120711
  Transmission Date: 20120928
  Serious: Yes (Other)
  Sender: FDA-Public Use
  Company Number: US-009507513-2012SP032619

PATIENT

DRUGS (2)
  1. PEG-INTRON [Suspect]
     Indication: HEPATITIS C
     Dosage: UNK
     Dates: start: 20120425
  2. RIBAVIRIN [Suspect]
     Indication: HEPATITIS C
     Dosage: UNK
     Dates: start: 20120426

REACTIONS (8)
  - PAIN [None]
  - THYROID FUNCTION TEST ABNORMAL [None]
  - HEARING IMPAIRED [None]
  - BREAST PAIN [None]
  - SENSITIVITY OF TEETH [None]
  - VEIN PAIN [None]
  - TOOTH INFECTION [None]
  - MYALGIA [None]
